FAERS Safety Report 9227816 (Version 1)
Quarter: 2013Q2

REPORT INFORMATION
  Report Type: Spontaneous
  Country: CO (occurrence: CO)
  Receive Date: 20130412
  Receipt Date: 20130412
  Transmission Date: 20140414
  Serious: Yes (Other)
  Sender: FDA-Public Use
  Company Number: CO-AMGEN-COLCT2011019566

PATIENT
  Age: 51 Year
  Sex: Female

DRUGS (6)
  1. ENBREL [Suspect]
     Indication: RHEUMATOID ARTHRITIS
     Dosage: 25 MG, 2X/WEEK
     Route: 058
     Dates: start: 2007
  2. ARAVA [Suspect]
     Dosage: 20 MG, UNK
     Route: 065
     Dates: start: 201210, end: 201210
  3. SALBUTAMOL [Concomitant]
     Indication: ASTHMA
     Dosage: UNK
     Route: 048
  4. IPRATROPIUM BROMIDE [Concomitant]
     Indication: ASTHMA
     Dosage: 2 PUFF, 1X/DAY
     Route: 048
  5. BECLOMETHASONE                     /00212602/ [Concomitant]
     Indication: ASTHMA
     Dosage: 2 PUFF, 1X/DAY
     Route: 048
     Dates: start: 2009
  6. CALCIUM [Concomitant]
     Indication: RHEUMATOID ARTHRITIS
     Dosage: UNK
     Route: 048

REACTIONS (6)
  - Haemorrhage [Recovering/Resolving]
  - Asthma [Not Recovered/Not Resolved]
  - Asthenia [Not Recovered/Not Resolved]
  - Swelling [Unknown]
  - Tuberculin test positive [Unknown]
  - Influenza [Not Recovered/Not Resolved]
